FAERS Safety Report 6914240-0 (Version None)
Quarter: 2010Q3

REPORT INFORMATION
  Report Type: 
  Country: None (occurrence: None)
  Receive Date: 20100809
  Receipt Date: 20100727
  Transmission Date: 20110219
  Serious: Yes (Hospitalization)
  Sender: FDA-Public Use
  Company Number: A0867430A

PATIENT
  Age: 43 Year
  Sex: Female
  Weight: 89.1 kg

DRUGS (1)
  1. AVANDIA [Suspect]
     Dosage: 8MG PER DAY
     Route: 048
     Dates: start: 20050101, end: 20070101

REACTIONS (3)
  - BRADYCARDIA [None]
  - FOOT FRACTURE [None]
  - MYOCARDIAL INFARCTION [None]
